FAERS Safety Report 4487721-X (Version None)
Quarter: 2004Q4

REPORT INFORMATION
  Report Type: 
  Country: None (occurrence: None)
  Receive Date: 20041027
  Receipt Date: 20041027
  Transmission Date: 20050328
  Serious: No
  Sender: FDA-Public Use
  Company Number: None

PATIENT
  Age: 56 Year
  Sex: Male
  Weight: 94.8018 kg

DRUGS (9)
  1. OXANDRIN [Suspect]
     Indication: WEIGHT DECREASED
     Dosage: PO BID
     Route: 048
     Dates: start: 20041006, end: 20041011
  2. LIPITOR [Concomitant]
  3. NEXIUM [Concomitant]
  4. ASPIRIN [Concomitant]
  5. COUMADIN [Concomitant]
  6. ZOFRAN [Concomitant]
  7. ATIVAN [Concomitant]
  8. COMPAZINE [Concomitant]
  9. EMEND [Concomitant]

REACTIONS (2)
  - CONSTIPATION [None]
  - FEBRILE NEUTROPENIA [None]
